FAERS Safety Report 5585987-6 (Version None)
Quarter: 2007Q4

REPORT INFORMATION
  Report Type: 
  Country: None (occurrence: None)
  Receive Date: 20071205
  Receipt Date: 20070208
  Transmission Date: 20080405
  Serious: Yes (Death)
  Sender: FDA-Public Use
  Company Number: HQWYE142120FEB07

PATIENT
  Age: 55 Year
  Sex: Male

DRUGS (1)
  1. EFFEXOR XR [Suspect]

REACTIONS (1)
  - COMPLETED SUICIDE [None]
